FAERS Safety Report 12055917 (Version 9)
Quarter: 2017Q3

REPORT INFORMATION
  Report Type: Report from Study
  Country: CN (occurrence: CN)
  Receive Date: 20160209
  Receipt Date: 20170703
  Transmission Date: 20171127
  Serious: Yes (Other)
  Sender: FDA-Public Use
  Company Number: PHHY2016CN012193

PATIENT
  Age: 47 Year
  Sex: Male

DRUGS (44)
  1. CICLOSPORIN [Suspect]
     Active Substance: CYCLOSPORINE
     Indication: RENAL TRANSPLANT
     Dosage: 200 MG, QD
     Route: 065
     Dates: start: 20151126, end: 20151207
  2. DEXAMETHASONE. [Suspect]
     Active Substance: DEXAMETHASONE
     Dosage: 5 MG, QD
     Route: 065
     Dates: start: 20151206, end: 20151206
  3. IRON PROTEINSUCCINYLATE [Concomitant]
     Indication: MINERAL SUPPLEMENTATION
     Dosage: 1 DF, QD
     Route: 048
     Dates: start: 20151124
  4. VORICONAZOLE. [Concomitant]
     Active Substance: VORICONAZOLE
     Indication: ANTIFUNGAL PROPHYLAXIS
     Dosage: 200 MG, QD
     Route: 042
     Dates: start: 20151113, end: 20151124
  5. FOLIC ACID. [Concomitant]
     Active Substance: FOLIC ACID
     Indication: ANAEMIA PROPHYLAXIS
     Dosage: 10 MG, TID
     Route: 048
     Dates: start: 20151124
  6. MYFORTIC [Suspect]
     Active Substance: MYCOPHENOLATE SODIUM
     Dosage: 1260 MG, QD
     Route: 065
     Dates: start: 20151209
  7. BASILIXIMAB [Suspect]
     Active Substance: BASILIXIMAB
     Indication: RENAL TRANSPLANT
     Dosage: 20 MG, QD
     Route: 065
     Dates: start: 20151113, end: 20151113
  8. METHYLPREDNISOLONE. [Suspect]
     Active Substance: METHYLPREDNISOLONE
     Dosage: 250 MG, QD
     Route: 065
     Dates: start: 20151118, end: 20151118
  9. CICLOSPORIN [Suspect]
     Active Substance: CYCLOSPORINE
     Dosage: 175 MG, QD
     Route: 065
     Dates: start: 20151208
  10. AMBROXOL HYDROCHLORIDE [Concomitant]
     Active Substance: AMBROXOL HYDROCHLORIDE
     Indication: PROPHYLAXIS
     Dosage: 60 MG, BID
     Route: 042
     Dates: start: 20151113, end: 20151124
  11. GANCICLOVIR. [Concomitant]
     Active Substance: GANCICLOVIR
     Indication: ANTIVIRAL PROPHYLAXIS
     Dosage: 250 MG, QD
     Route: 042
     Dates: start: 20151124, end: 20151128
  12. LATAMOXEF SODIUM [Concomitant]
     Dosage: 1.5 G, BID
     Route: 042
     Dates: start: 20151206, end: 20151206
  13. CALCIUM GLUCONATE                  /01282001/ [Concomitant]
     Indication: MINERAL SUPPLEMENTATION
     Dosage: 1 G, TID
     Route: 042
     Dates: start: 20151113, end: 20151115
  14. VITAMIN B1//THIAMINE [Concomitant]
     Indication: TREMOR
     Dosage: 10 MG, TID
     Route: 048
     Dates: start: 20151128
  15. VITAMIN B1//THIAMINE [Concomitant]
     Indication: PARALYSIS
  16. MYFORTIC [Suspect]
     Active Substance: MYCOPHENOLATE SODIUM
     Indication: RENAL TRANSPLANT
     Dosage: 1440 MG, QD
     Route: 065
     Dates: start: 20151113, end: 20151113
  17. METHYLPREDNISOLONE. [Suspect]
     Active Substance: METHYLPREDNISOLONE
     Indication: IMMUNOSUPPRESSION
     Dosage: 500 MG, QD
     Route: 065
     Dates: start: 20151113, end: 20151117
  18. ASPIRIN                            /00346701/ [Concomitant]
     Active Substance: ASCORBIC ACID\ASPIRIN
     Indication: PLATELET AGGREGATION
     Dosage: 0.1 G, QD
     Route: 048
     Dates: start: 20151115
  19. BENZHEXOL HYDROCHLORIDE [Concomitant]
     Active Substance: TRIHEXYPHENIDYL HYDROCHLORIDE
     Indication: TREMOR
     Dosage: 1 MG, BID
     Route: 048
     Dates: start: 20151125, end: 20151128
  20. COENZYME A [Concomitant]
     Active Substance: COENZYME A
     Indication: SUPPLEMENTATION THERAPY
     Dosage: 100 IU, QD
     Route: 042
     Dates: start: 20151113, end: 20151115
  21. SULFAMETHOXAZOLE [Concomitant]
     Active Substance: SULFAMETHOXAZOLE
     Indication: PNEUMOCYSTIS JIROVECII INFECTION
     Dosage: 0.48 G, QD
     Route: 048
     Dates: start: 20151127
  22. MYFORTIC [Suspect]
     Active Substance: MYCOPHENOLATE SODIUM
     Dosage: 1080 MG, QD
     Route: 065
     Dates: start: 20151208, end: 20151208
  23. BASILIXIMAB [Suspect]
     Active Substance: BASILIXIMAB
     Dosage: 20 MG, QD
     Route: 065
     Dates: start: 20151117, end: 20151117
  24. DEXAMETHASONE. [Suspect]
     Active Substance: DEXAMETHASONE
     Indication: IMMUNOSUPPRESSANT DRUG THERAPY
     Dosage: 10 MG, QD
     Route: 065
     Dates: start: 20151113, end: 20151113
  25. ALPROSTADIL. [Concomitant]
     Active Substance: ALPROSTADIL
     Indication: PLATELET AGGREGATION
     Dosage: 10 UG, BID
     Route: 042
     Dates: start: 20151113, end: 20151127
  26. PREDNISONE. [Suspect]
     Active Substance: PREDNISONE
     Indication: IMMUNOSUPPRESSANT DRUG THERAPY
     Dosage: 10 MG, QD
     Route: 065
     Dates: start: 20151118
  27. SODIUM BICARBONATE. [Concomitant]
     Active Substance: SODIUM BICARBONATE
     Indication: ELECTROLYTE IMBALANCE
     Dosage: 10 ML, BID
     Route: 065
     Dates: start: 20151113, end: 20151127
  28. BENZHEXOL HYDROCHLORIDE [Concomitant]
     Active Substance: TRIHEXYPHENIDYL HYDROCHLORIDE
     Indication: PARALYSIS
     Dosage: 2 MG, BID
     Route: 048
     Dates: start: 20151128, end: 20151207
  29. MECOBALAMIN [Concomitant]
     Active Substance: METHYLCOBALAMIN
     Indication: NEUROPATHY PERIPHERAL
     Dosage: 500 UG, TID
     Route: 048
     Dates: start: 20151128
  30. ADENOSINE TRIPHOSPHATE [Concomitant]
     Active Substance: ADENOSINE TRIPHOSPHATE
     Indication: SUPPLEMENTATION THERAPY
     Dosage: 20 MG, QD
     Route: 042
     Dates: start: 20151113, end: 20151115
  31. TACROLIMUS. [Suspect]
     Active Substance: TACROLIMUS
     Indication: IMMUNOSUPPRESSANT DRUG THERAPY
     Dosage: 3.5 MG, QD
     Route: 065
     Dates: start: 20151116, end: 20151126
  32. DILTIAZEM HYDROCHLORIDE. [Concomitant]
     Active Substance: DILTIAZEM HYDROCHLORIDE
     Dosage: 60 MG, Q12H
     Route: 048
     Dates: start: 20151208
  33. MEROPENEM. [Concomitant]
     Active Substance: MEROPENEM
     Indication: ANTIBIOTIC PROPHYLAXIS
     Dosage: 1 G, Q8H
     Route: 042
     Dates: start: 20151206, end: 20151208
  34. VITAMIN C [Concomitant]
     Active Substance: ASCORBIC ACID
     Indication: SUPPLEMENTATION THERAPY
     Dosage: 2 G, QD
     Route: 042
     Dates: start: 20151113, end: 20151115
  35. LEVOCARNITINE. [Concomitant]
     Active Substance: LEVOCARNITINE
     Indication: CARDIOVASCULAR EVENT PROPHYLAXIS
     Dosage: 1 G, QD
     Route: 042
     Dates: start: 20151113, end: 20151124
  36. PANTOPRAZOLE SODIUM. [Concomitant]
     Active Substance: PANTOPRAZOLE SODIUM
     Indication: PROPHYLAXIS
     Dosage: 40 MG, BID
     Route: 042
     Dates: start: 20151113, end: 20151124
  37. MYFORTIC [Suspect]
     Active Substance: MYCOPHENOLATE SODIUM
     Indication: IMMUNOSUPPRESSANT DRUG THERAPY
     Dosage: 1080 MG, QD
     Route: 065
     Dates: start: 20151124, end: 20151125
  38. MYFORTIC [Suspect]
     Active Substance: MYCOPHENOLATE SODIUM
     Dosage: 1260 MG, QD
     Route: 065
     Dates: start: 20151126, end: 20151207
  39. CALCIUM ACETATE. [Concomitant]
     Active Substance: CALCIUM ACETATE
     Indication: MINERAL SUPPLEMENTATION
     Dosage: 1 DF, TID
     Route: 048
     Dates: start: 20151115
  40. DILTIAZEM HYDROCHLORIDE. [Concomitant]
     Active Substance: DILTIAZEM HYDROCHLORIDE
     Indication: IMMUNOSUPPRESSANT DRUG THERAPY
     Dosage: 60 MG, Q12H
     Route: 048
     Dates: start: 20151118, end: 20151207
  41. LATAMOXEF SODIUM [Concomitant]
     Indication: ANTIBIOTIC PROPHYLAXIS
     Dosage: 1.5 G, BID
     Route: 042
     Dates: start: 20151113, end: 20151124
  42. POTASSIUM CHLORIDE. [Concomitant]
     Active Substance: POTASSIUM CHLORIDE
     Indication: PROPHYLAXIS
     Dosage: 1 G, BID
     Route: 048
     Dates: start: 20151118, end: 20151127
  43. LEVOCARNITINE. [Concomitant]
     Active Substance: LEVOCARNITINE
     Indication: CHRONIC KIDNEY DISEASE
  44. SODIUM BICARBONATE. [Concomitant]
     Active Substance: SODIUM BICARBONATE
     Indication: URINE ALKALINISATION THERAPY
     Dosage: 0.5 G, TID
     Route: 048
     Dates: start: 20151127

REACTIONS (10)
  - Lymphocyte count decreased [Unknown]
  - Platelet count decreased [Unknown]
  - Urinary tract infection [Recovering/Resolving]
  - Pyrexia [Recovering/Resolving]
  - Renal injury [Recovering/Resolving]
  - Blood urea increased [Unknown]
  - Hypokalaemia [Recovering/Resolving]
  - Blood glucose increased [Unknown]
  - Haemoglobin decreased [Unknown]
  - Hypoaesthesia [Recovering/Resolving]

NARRATIVE: CASE EVENT DATE: 20151117
